FAERS Safety Report 6442897-X (Version None)
Quarter: 2009Q4

REPORT INFORMATION
  Report Type: 
  Country: None (occurrence: None)
  Receive Date: 20091117
  Receipt Date: 20091102
  Transmission Date: 20100525
  Serious: Yes (Hospitalization)
  Sender: FDA-Public Use
  Company Number: DE-BRISTOL-MYERS SQUIBB COMPANY-14848915

PATIENT
  Age: 25 Year
  Sex: Female

DRUGS (1)
  1. CARBIDOPA-LEVODOPA [Suspect]
     Indication: GAIT DISTURBANCE
     Dosage: TAKEN 2500MG/D ALSO

REACTIONS (2)
  - DRUG DEPENDENCE [None]
  - PSYCHOTIC DISORDER [None]
